FAERS Safety Report 7645101-X (Version None)
Quarter: 2011Q3

REPORT INFORMATION
  Report Type: 
  Country: None (occurrence: None)
  Receive Date: 20110729
  Receipt Date: 20110719
  Transmission Date: 20111222
  Serious: Yes (Other)
  Sender: FDA-Public Use
  Company Number: PHHY2011US61676

PATIENT
  Sex: Male

DRUGS (7)
  1. BACLOFEN [Concomitant]
     Dosage: 20 MG, UNK
     Route: 048
  2. DETROL [Concomitant]
     Dosage: 2 MG, UNK
     Route: 048
  3. LIPITOR [Concomitant]
     Dosage: 20 MG, UNK
     Route: 048
  4. SOLU-MEDROL [Concomitant]
     Dosage: 1 G, UNK
  5. PROZAC [Concomitant]
     Dosage: 20 MG, UNK
     Route: 048
  6. REQUIP [Concomitant]
     Dosage: 0.5 MG, UNK
     Route: 048
  7. GILENYA [Suspect]
     Indication: RELAPSING-REMITTING MULTIPLE SCLEROSIS
     Dosage: 0.5 MG, QD
     Route: 048
     Dates: start: 20110412

REACTIONS (3)
  - DIARRHOEA [None]
  - MICTURITION URGENCY [None]
  - INCONTINENCE [None]
